FAERS Safety Report 12393287 (Version 27)
Quarter: 2025Q2

REPORT INFORMATION
  Report Type: Report from Study
  Country: CA (occurrence: CA)
  Receive Date: 20160523
  Receipt Date: 20250418
  Transmission Date: 20250717
  Serious: Yes (Hospitalization, Other)
  Sender: ROCHE
  Company Number: CA-002147023-PHHY2015CA045822

PATIENT
  Age: 49 Year
  Sex: Female

DRUGS (36)
  1. XOLAIR [Suspect]
     Active Substance: OMALIZUMAB
     Indication: Asthma
     Route: 058
     Dates: start: 20150317
  2. XOLAIR [Suspect]
     Active Substance: OMALIZUMAB
     Route: 058
     Dates: start: 20150415
  3. XOLAIR [Suspect]
     Active Substance: OMALIZUMAB
     Route: 058
     Dates: start: 20150513
  4. XOLAIR [Suspect]
     Active Substance: OMALIZUMAB
     Route: 058
     Dates: start: 20150708
  5. XOLAIR [Suspect]
     Active Substance: OMALIZUMAB
     Route: 058
     Dates: start: 20150805
  6. XOLAIR [Suspect]
     Active Substance: OMALIZUMAB
     Route: 058
     Dates: start: 20160315
  7. XOLAIR [Suspect]
     Active Substance: OMALIZUMAB
     Route: 058
     Dates: start: 20160511
  8. XOLAIR [Suspect]
     Active Substance: OMALIZUMAB
     Route: 058
     Dates: start: 20160608
  9. XOLAIR [Suspect]
     Active Substance: OMALIZUMAB
     Route: 058
     Dates: start: 20160706
  10. XOLAIR [Suspect]
     Active Substance: OMALIZUMAB
     Route: 058
     Dates: start: 20160831
  11. XOLAIR [Suspect]
     Active Substance: OMALIZUMAB
     Route: 058
     Dates: start: 20161121
  12. XOLAIR [Suspect]
     Active Substance: OMALIZUMAB
     Route: 058
     Dates: start: 20161222
  13. XOLAIR [Suspect]
     Active Substance: OMALIZUMAB
     Route: 058
     Dates: start: 20170217
  14. XOLAIR [Suspect]
     Active Substance: OMALIZUMAB
     Route: 058
  15. XOLAIR [Suspect]
     Active Substance: OMALIZUMAB
     Route: 058
     Dates: start: 20170901
  16. XOLAIR [Suspect]
     Active Substance: OMALIZUMAB
     Route: 058
     Dates: start: 20170929
  17. XOLAIR [Suspect]
     Active Substance: OMALIZUMAB
     Route: 058
     Dates: start: 20171031
  18. XOLAIR [Suspect]
     Active Substance: OMALIZUMAB
     Route: 058
     Dates: start: 20171222
  19. XOLAIR [Suspect]
     Active Substance: OMALIZUMAB
     Route: 058
     Dates: start: 20180119
  20. XOLAIR [Suspect]
     Active Substance: OMALIZUMAB
     Route: 058
     Dates: start: 20180316
  21. XOLAIR [Suspect]
     Active Substance: OMALIZUMAB
     Route: 058
     Dates: start: 20180514
  22. XOLAIR [Suspect]
     Active Substance: OMALIZUMAB
     Route: 058
     Dates: start: 20181015
  23. XOLAIR [Suspect]
     Active Substance: OMALIZUMAB
     Route: 058
     Dates: start: 20190527
  24. XOLAIR [Suspect]
     Active Substance: OMALIZUMAB
     Route: 058
  25. XOLAIR [Suspect]
     Active Substance: OMALIZUMAB
     Route: 058
  26. XOLAIR [Suspect]
     Active Substance: OMALIZUMAB
     Route: 058
  27. XOLAIR [Suspect]
     Active Substance: OMALIZUMAB
     Route: 058
     Dates: start: 20210909
  28. XOLAIR [Suspect]
     Active Substance: OMALIZUMAB
     Route: 058
     Dates: start: 20211209
  29. XOLAIR [Suspect]
     Active Substance: OMALIZUMAB
     Route: 065
  30. AZITHROMYCIN [Concomitant]
     Active Substance: AZITHROMYCIN
     Indication: Respiratory tract infection
     Route: 065
  31. AZITHROMYCIN [Concomitant]
     Active Substance: AZITHROMYCIN
  32. AZITHROMYCIN [Concomitant]
     Active Substance: AZITHROMYCIN
     Dates: start: 20180110
  33. AZITHROMYCIN [Concomitant]
     Active Substance: AZITHROMYCIN
  34. SPIRIVA [Concomitant]
     Active Substance: TIOTROPIUM BROMIDE MONOHYDRATE
     Indication: Product used for unknown indication
     Dosage: 4 DF, QD (PUFFS)
     Route: 065
  35. SPIRIVA [Concomitant]
     Active Substance: TIOTROPIUM BROMIDE MONOHYDRATE
  36. DEXAMETHASONE [Concomitant]
     Active Substance: DEXAMETHASONE

REACTIONS (57)
  - Gait disturbance [Unknown]
  - Productive cough [Unknown]
  - Nausea [Unknown]
  - Eye haemorrhage [Unknown]
  - Ocular hyperaemia [Recovering/Resolving]
  - Dry throat [Unknown]
  - Pneumonia [Unknown]
  - Choking [Unknown]
  - Staphylococcal infection [Unknown]
  - Lower limb fracture [Unknown]
  - Bronchitis [Recovering/Resolving]
  - Respiratory tract congestion [Unknown]
  - Cough [Recovering/Resolving]
  - Dysphagia [Recovering/Resolving]
  - Abdominal pain [Not Recovered/Not Resolved]
  - Influenza [Recovering/Resolving]
  - Foot fracture [Unknown]
  - Respiratory disorder [Unknown]
  - Oropharyngeal pain [Recovering/Resolving]
  - Asthenia [Recovering/Resolving]
  - Chills [Recovering/Resolving]
  - Hyperhidrosis [Recovering/Resolving]
  - Asthma [Not Recovered/Not Resolved]
  - Chest discomfort [Unknown]
  - Vomiting [Unknown]
  - Pharyngeal swelling [Unknown]
  - Fatigue [Unknown]
  - Fungal skin infection [Not Recovered/Not Resolved]
  - Dysphonia [Unknown]
  - Illness [Not Recovered/Not Resolved]
  - Wrong technique in product usage process [Unknown]
  - Rib fracture [Unknown]
  - Sinus congestion [Recovering/Resolving]
  - Tendon rupture [Unknown]
  - Fall [Unknown]
  - Weight increased [Unknown]
  - Pain [Unknown]
  - Wheezing [Unknown]
  - Food allergy [Recovering/Resolving]
  - Insomnia [Unknown]
  - Middle insomnia [Unknown]
  - Body temperature decreased [Unknown]
  - Respiratory disorder [Unknown]
  - Sputum discoloured [Unknown]
  - Oral mucosal blistering [Recovering/Resolving]
  - Urinary tract infection [Unknown]
  - Upper limb fracture [Unknown]
  - Gastroenteritis viral [Recovered/Resolved]
  - Bronchial secretion retention [Recovering/Resolving]
  - Blood pressure increased [Recovering/Resolving]
  - Dyspnoea [Recovering/Resolving]
  - Spinal fracture [Unknown]
  - Nasopharyngitis [Unknown]
  - Forced expiratory volume decreased [Unknown]
  - Injection site pain [Recovered/Resolved]
  - COVID-19 [Unknown]
  - Chlorine sensitivity [Unknown]

NARRATIVE: CASE EVENT DATE: 20150414
